FAERS Safety Report 16598509 (Version 2)
Quarter: 2019Q3

REPORT INFORMATION
  Report Type: Spontaneous
  Country: MY (occurrence: MY)
  Receive Date: 20190719
  Receipt Date: 20190723
  Transmission Date: 20191004
  Serious: Yes (Death, Hospitalization)
  Sender: FDA-Public Use
  Company Number: MY-ASTRAZENECA-2019SF03937

PATIENT
  Age: 81 Year
  Sex: Female

DRUGS (4)
  1. PULMICORT RESPULES [Suspect]
     Active Substance: BUDESONIDE
     Indication: ASTHMA
     Dosage: 1.0UG UNKNOWN
     Route: 055
     Dates: start: 20190716, end: 20190716
  2. CARDIPRIN [Concomitant]
  3. DIGOXIN. [Concomitant]
     Active Substance: DIGOXIN
  4. SALBUTAMOL [Concomitant]
     Active Substance: ALBUTEROL

REACTIONS (2)
  - Death [Fatal]
  - Asthma [Unknown]

NARRATIVE: CASE EVENT DATE: 20190716
